FAERS Safety Report 22383395 (Version 1)
Quarter: 2023Q2

REPORT INFORMATION
  Report Type: Spontaneous
  Country: US (occurrence: US)
  Receive Date: 20230530
  Receipt Date: 20230530
  Transmission Date: 20230722
  Serious: No
  Sender: FDA-Public Use
  Company Number: US-TAKEDA-2023TUS051769

PATIENT
  Age: 56 Year
  Sex: Female
  Weight: 49.887 kg

DRUGS (1)
  1. GAMMAGARD LIQUID [Suspect]
     Active Substance: HUMAN IMMUNOGLOBULIN G
     Indication: Primary immunodeficiency syndrome
     Dosage: 22 GRAM, MONTHLY
     Route: 065
     Dates: start: 20230516

REACTIONS (3)
  - Migraine [Unknown]
  - Fatigue [Unknown]
  - Wrong technique in product usage process [Unknown]
